FAERS Safety Report 9736792 (Version 1)
Quarter: 2013Q4

REPORT INFORMATION
  Report Type: Spontaneous
  Country: US (occurrence: US)
  Receive Date: 20131206
  Receipt Date: 20131206
  Transmission Date: 20140711
  Serious: No
  Sender: FDA-Public Use
  Company Number: US-BIOGENIDEC-2013BI094625

PATIENT
  Sex: Female
  Weight: 55 kg

DRUGS (11)
  1. TECFIDERA [Suspect]
     Indication: PRODUCT USED FOR UNKNOWN INDICATION
     Route: 048
  2. TECFIDERA [Suspect]
     Indication: PRODUCT USED FOR UNKNOWN INDICATION
     Route: 048
  3. GABAPENTIN [Concomitant]
  4. BACLOFEN [Concomitant]
  5. RITALIN [Concomitant]
  6. SINGULAIR [Concomitant]
  7. BENEFIBER [Concomitant]
  8. CENTRUM [Concomitant]
  9. FLONASE [Concomitant]
  10. ADVIL [Concomitant]
  11. ALLEGRA [Concomitant]

REACTIONS (1)
  - Nausea [Unknown]
